FAERS Safety Report 8280012-0 (Version None)
Quarter: 2012Q2

REPORT INFORMATION
  Report Type: 
  Country: None (occurrence: None)
  Receive Date: 20120412
  Receipt Date: 20110330
  Transmission Date: 20120825
  Serious: No
  Sender: FDA-Public Use
  Company Number: US-ASTRAZENECA-2011SE18243

PATIENT
  Age: 69 Year
  Sex: Female

DRUGS (5)
  1. METFORMIN HCL [Concomitant]
  2. PLAVIX [Concomitant]
  3. NEXIUM [Suspect]
     Route: 048
  4. DIGOXIN [Concomitant]
  5. BONIVA [Concomitant]

REACTIONS (4)
  - TYPE 2 DIABETES MELLITUS [None]
  - DYSPEPSIA [None]
  - INCORRECT DOSE ADMINISTERED [None]
  - OSTEOPOROSIS [None]
